FAERS Safety Report 13007799 (Version 1)
Quarter: 2016Q4

REPORT INFORMATION
  Report Type: Spontaneous
  Country: US (occurrence: US)
  Receive Date: 20161207
  Receipt Date: 20161207
  Transmission Date: 20170207
  Serious: No
  Sender: FDA-Public Use
  Company Number: US-009507513-1612USA000636

PATIENT
  Age: 73 Year
  Sex: Female

DRUGS (5)
  1. ASMANEX [Suspect]
     Active Substance: MOMETASONE FUROATE
     Dosage: 10 ML CONTAINER; 1 DOSE, TWICE DAILY, INHALATION
     Route: 055
     Dates: end: 20161115
  2. ASMANEX [Suspect]
     Active Substance: MOMETASONE FUROATE
     Indication: ASTHMA
     Dosage: 10 ML CONTAINER; 1 DOSE, TWICE DAILY, INHALATION
     Route: 055
     Dates: start: 20161116, end: 201611
  3. GABAPENTIN. [Concomitant]
     Active Substance: GABAPENTIN
     Indication: NEURALGIA
  4. ASMANEX [Suspect]
     Active Substance: MOMETASONE FUROATE
     Dosage: 10 ML CONTAINER; 1 DOSE, TWICE DAILY, INHALATION
     Route: 055
     Dates: start: 201611
  5. FOSAMAX [Concomitant]
     Active Substance: ALENDRONATE SODIUM
     Indication: OSTEOPOROSIS

REACTIONS (2)
  - Drug ineffective [Unknown]
  - Product quality issue [Unknown]

NARRATIVE: CASE EVENT DATE: 20161123
